FAERS Safety Report 8151312-X (Version None)
Quarter: 2012Q1

REPORT INFORMATION
  Report Type: 
  Country: None (occurrence: None)
  Receive Date: 20120220
  Receipt Date: 20120214
  Transmission Date: 20120608
  Serious: Yes (Death, Life-Threatening, Hospitalization, Disabling)
  Sender: FDA-Public Use
  Company Number: JP-ASTRAZENECA-2012SE01122

PATIENT
  Age: 27276 Day
  Sex: Male
  Weight: 70 kg

DRUGS (4)
  1. CIPROFLOXACIN [Suspect]
     Indication: PNEUMONIA
     Route: 042
     Dates: start: 20101214, end: 20101215
  2. DIPRIVAN [Suspect]
     Indication: SEDATION
     Route: 042
     Dates: start: 20101101, end: 20101201
  3. TAICEZOLIN [Concomitant]
     Indication: POSTOPERATIVE WOUND INFECTION
     Route: 042
     Dates: start: 20101122, end: 20101125
  4. PHENYTOIN SODIUM CAP [Concomitant]
     Indication: CONVULSION
     Route: 042
     Dates: start: 20101203, end: 20101215

REACTIONS (6)
  - DELAYED RECOVERY FROM ANAESTHESIA [None]
  - RENAL FAILURE ACUTE [None]
  - DIABETIC HYPEROSMOLAR COMA [None]
  - RHABDOMYOLYSIS [None]
  - PNEUMONIA [None]
  - CEREBRAL INFARCTION [None]
